FAERS Safety Report 6428143-1 (Version None)
Quarter: 2009Q4

REPORT INFORMATION
  Report Type: 
  Country: None (occurrence: None)
  Receive Date: 20091105
  Receipt Date: 20091005
  Transmission Date: 20100525
  Serious: No
  Sender: FDA-Public Use
  Company Number: US-BAYER-200935496NA

PATIENT
  Age: 31 Year
  Sex: Female
  Weight: 96 kg

DRUGS (2)
  1. MIRENA [Suspect]
     Indication: CONTRACEPTION
     Route: 015
     Dates: start: 20020101, end: 20070924
  2. MIRENA [Suspect]
     Dosage: CONTINUOUS
     Route: 015
     Dates: start: 20070924, end: 20090924

REACTIONS (2)
  - AMENORRHOEA [None]
  - OVARIAN CYST [None]
